FAERS Safety Report 6041907-1 (Version None)
Quarter: 2009Q1

REPORT INFORMATION
  Report Type: 
  Country: None (occurrence: None)
  Receive Date: 20090116
  Receipt Date: 20090115
  Transmission Date: 20090719
  Serious: Yes (Life-Threatening)
  Sender: FDA-Public Use
  Company Number: CA-ASTRAZENECA-2009UW01260

PATIENT
  Age: 60 Year
  Sex: Male

DRUGS (2)
  1. OMEPRAZOLE [Suspect]
     Dosage: 20MG
     Route: 048
  2. OMEPRAZOLE [Suspect]

REACTIONS (3)
  - CARDIAC DISORDER [None]
  - CIRCULATORY COLLAPSE [None]
  - MITRAL VALVE PROLAPSE [None]
